APPROVED DRUG PRODUCT: MANDOL
Active Ingredient: CEFAMANDOLE NAFATE
Strength: EQ 10GM BASE/VIAL
Dosage Form/Route: INJECTABLE;INJECTION
Application: N050504 | Product #004
Applicant: ELI LILLY AND CO
Approved: Approved Prior to Jan 1, 1982 | RLD: No | RS: No | Type: DISCN